FAERS Safety Report 17086700 (Version 1)
Quarter: 2019Q4

REPORT INFORMATION
  Report Type: Spontaneous
  Country: US (occurrence: US)
  Receive Date: 20191128
  Receipt Date: 20191128
  Transmission Date: 20200122
  Serious: Yes (Other)
  Sender: FDA-Public Use
  Company Number: US-JNJFOC-20191130090

PATIENT
  Age: 1 Year
  Sex: Male
  Weight: 11.35 kg

DRUGS (4)
  1. CLARITIN [Concomitant]
     Active Substance: LORATADINE
     Indication: PRODUCT USED FOR UNKNOWN INDICATION
     Route: 065
  2. AVEENO ACTIVE NATURALS ECZEMA THERAPY ITCH RELIEF BALM [Suspect]
     Active Substance: OATMEAL
     Indication: ECZEMA
     Dosage: ESTIMATED FOUR TEASPOON ONCE ONLY
     Route: 061
     Dates: start: 201911
  3. BENADRYL [Concomitant]
     Active Substance: DIPHENHYDRAMINE HYDROCHLORIDE
     Indication: PRODUCT USED FOR UNKNOWN INDICATION
     Route: 065
  4. VASELINE                           /00473501/ [Concomitant]
     Active Substance: PARAFFIN
     Indication: PRODUCT USED FOR UNKNOWN INDICATION
     Route: 061

REACTIONS (1)
  - Application site urticaria [Recovered/Resolved]

NARRATIVE: CASE EVENT DATE: 201911
